FAERS Safety Report 10735562 (Version 2)
Quarter: 2015Q1

REPORT INFORMATION
  Report Type: Spontaneous
  Country: FR (occurrence: FR)
  Receive Date: 20150126
  Receipt Date: 20150130
  Transmission Date: 20150721
  Serious: Yes (Hospitalization, Other)
  Sender: FDA-Public Use
  Company Number: FR-009507513-1501FRA009620

PATIENT
  Age: 86 Year
  Sex: Male

DRUGS (8)
  1. CLOXACILLIN [Suspect]
     Active Substance: CLOXACILLIN
     Indication: INTERVERTEBRAL DISCITIS
     Dosage: 2G X 6
     Dates: start: 20120609, end: 20120615
  2. GENTALLINE [Suspect]
     Active Substance: GENTAMICIN SULFATE
     Indication: INTERVERTEBRAL DISCITIS
     Dosage: 210 MG, QD
     Dates: start: 20120609, end: 20120615
  3. FUROSEMIDE. [Suspect]
     Active Substance: FUROSEMIDE
  4. ATORVASTATIN [Concomitant]
     Active Substance: ATORVASTATIN
  5. WARFARIN [Concomitant]
     Active Substance: WARFARIN
  6. TRAMADOL HYDROCHLORIDE. [Concomitant]
     Active Substance: TRAMADOL HYDROCHLORIDE
  7. RAMIPRIL. [Suspect]
     Active Substance: RAMIPRIL
  8. ALPRAZOLAM. [Concomitant]
     Active Substance: ALPRAZOLAM

REACTIONS (1)
  - Acute kidney injury [Not Recovered/Not Resolved]

NARRATIVE: CASE EVENT DATE: 20120610
